FAERS Safety Report 15699548 (Version 6)
Quarter: 2019Q4

REPORT INFORMATION
  Report Type: Spontaneous
  Country: JP (occurrence: JP)
  Receive Date: 20181207
  Receipt Date: 20191216
  Transmission Date: 20200122
  Serious: Yes (Other)
  Sender: FDA-Public Use
  Company Number: JP-JNJFOC-20181202259

PATIENT
  Age: 41 Year
  Sex: Male
  Weight: 108 kg

DRUGS (25)
  1. HUMALOG [Concomitant]
     Active Substance: INSULIN LISPRO
     Route: 051
     Dates: start: 20160728, end: 20160912
  2. HUMALOG [Concomitant]
     Active Substance: INSULIN LISPRO
     Route: 051
     Dates: start: 20181120
  3. LINZESS [Concomitant]
     Active Substance: LINACLOTIDE
     Indication: PRODUCT USED FOR UNKNOWN INDICATION
     Route: 048
     Dates: start: 20181120
  4. PURSENNID [Concomitant]
     Dosage: STARTED BEFORE 2009
     Route: 048
     Dates: end: 20181118
  5. NESINA [Concomitant]
     Active Substance: ALOGLIPTIN BENZOATE
     Indication: TYPE 2 DIABETES MELLITUS
     Route: 048
     Dates: start: 20121024, end: 20171204
  6. LAC-B [Concomitant]
     Active Substance: BIFIDOBACTERIUM SPP.
     Indication: PRODUCT USED FOR UNKNOWN INDICATION
     Route: 048
     Dates: start: 20181119
  7. HUMALOG [Concomitant]
     Active Substance: INSULIN LISPRO
     Route: 051
     Dates: start: 20160418, end: 20160531
  8. INFLUENZA HA VACCINE [Concomitant]
     Active Substance: INFLUENZA VIRUS VACCINE
     Indication: PROPHYLAXIS
     Route: 051
     Dates: start: 20171023, end: 20171023
  9. FOLIAMIN [Concomitant]
     Active Substance: FOLIC ACID
     Indication: PROPHYLAXIS
     Dosage: STARTED BEFORE 2009
     Route: 048
  10. HYDROCHLOROTHIAZIDE. [Concomitant]
     Active Substance: HYDROCHLOROTHIAZIDE
     Route: 048
     Dates: start: 20120704
  11. HUMALOG [Concomitant]
     Active Substance: INSULIN LISPRO
     Route: 051
     Dates: start: 20170128, end: 20181119
  12. TAKEPRON [Concomitant]
     Active Substance: LANSOPRAZOLE
     Indication: PROPHYLAXIS
     Route: 048
     Dates: start: 20120704
  13. METGLUCO [Concomitant]
     Active Substance: METFORMIN HYDROCHLORIDE
     Indication: TYPE 2 DIABETES MELLITUS
     Route: 048
     Dates: start: 20130111, end: 20171204
  14. LANTUS [Concomitant]
     Active Substance: INSULIN GLARGINE
     Indication: TYPE 2 DIABETES MELLITUS
     Route: 051
     Dates: start: 20150114
  15. HUMALOG [Concomitant]
     Active Substance: INSULIN LISPRO
     Indication: TYPE 2 DIABETES MELLITUS
     Route: 051
     Dates: start: 20150819, end: 20160417
  16. INISYNC [Concomitant]
     Active Substance: ALOGLIPTIN BENZOATE\METFORMIN HYDROCHLORIDE
     Indication: TYPE 2 DIABETES MELLITUS
     Route: 048
     Dates: start: 20171205
  17. CANAGLIFLOZIN [Suspect]
     Active Substance: CANAGLIFLOZIN
     Indication: TYPE 2 DIABETES MELLITUS
     Route: 048
     Dates: start: 20151130
  18. RHEUMATREX [Suspect]
     Active Substance: METHOTREXATE SODIUM
     Indication: PRODUCT USED FOR UNKNOWN INDICATION
     Dosage: STARTED BEFORE 2009
     Route: 048
  19. HUMALOG [Concomitant]
     Active Substance: INSULIN LISPRO
     Route: 051
     Dates: start: 20160601, end: 20160727
  20. HUMALOG [Concomitant]
     Active Substance: INSULIN LISPRO
     Route: 051
     Dates: start: 20160913, end: 20161219
  21. HUMALOG [Concomitant]
     Active Substance: INSULIN LISPRO
     Route: 051
     Dates: start: 20161220, end: 20170127
  22. LIPIDIL [Concomitant]
     Active Substance: FENOFIBRATE
     Dosage: STARTED BEFORE 2009
     Route: 048
  23. MICAMLO [Concomitant]
     Active Substance: AMLODIPINE BESYLATE\TELMISARTAN
     Route: 048
     Dates: start: 20120509
  24. CRESTOR [Concomitant]
     Active Substance: ROSUVASTATIN CALCIUM
     Route: 048
     Dates: start: 20150819
  25. GENINAX [Concomitant]
     Active Substance: GARENOXACIN MESYLATE
     Indication: PRODUCT USED FOR UNKNOWN INDICATION
     Route: 048
     Dates: start: 20151130, end: 20151204

REACTIONS (5)
  - Road traffic accident [Unknown]
  - Albumin urine present [Not Recovered/Not Resolved]
  - Upper limb fracture [Recovering/Resolving]
  - Upper respiratory tract infection [Recovered/Resolved]
  - Blood creatinine increased [Not Recovered/Not Resolved]

NARRATIVE: CASE EVENT DATE: 2016
